FAERS Safety Report 15858114 (Version 4)
Quarter: 2019Q4

REPORT INFORMATION
  Report Type: Report from Study
  Country: US (occurrence: US)
  Receive Date: 20190123
  Receipt Date: 20191115
  Transmission Date: 20200122
  Serious: Yes (Hospitalization)
  Sender: FDA-Public Use
  Company Number: US-JNJFOC-20190121730

PATIENT
  Age: 89 Year
  Sex: Male

DRUGS (13)
  1. AMIODARON HCL [Suspect]
     Active Substance: AMIODARONE HYDROCHLORIDE
     Indication: HEART RATE
     Dosage: 200 MG, UNK
     Route: 065
     Dates: start: 201907
  2. FUROSEMIDE. [Concomitant]
     Active Substance: FUROSEMIDE
  3. TAMSULOSIN HCL [Concomitant]
     Active Substance: TAMSULOSIN HYDROCHLORIDE
  4. IMBRUVICA [Suspect]
     Active Substance: IBRUTINIB
     Indication: MALIGNANT PLEURAL EFFUSION
  5. FINASTERIDE. [Concomitant]
     Active Substance: FINASTERIDE
  6. METOPROLOL TARTRATE. [Concomitant]
     Active Substance: METOPROLOL TARTRATE
  7. ATORVASTATIN CALCIUM. [Concomitant]
     Active Substance: ATORVASTATIN CALCIUM
  8. TRANDOLAPRIL. [Concomitant]
     Active Substance: TRANDOLAPRIL
  9. LATANOPROST. [Concomitant]
     Active Substance: LATANOPROST
  10. HEPARIN [Suspect]
     Active Substance: HEPARIN SODIUM
     Indication: PRODUCT USED FOR UNKNOWN INDICATION
  11. ALPHAGAN P [Concomitant]
     Active Substance: BRIMONIDINE TARTRATE
  12. IMBRUVICA [Suspect]
     Active Substance: IBRUTINIB
     Indication: CHRONIC LYMPHOCYTIC LEUKAEMIA
     Route: 048
     Dates: start: 20180802
  13. ASPIRIN. [Concomitant]
     Active Substance: ASPIRIN

REACTIONS (3)
  - Atrial fibrillation [Unknown]
  - Epistaxis [Unknown]
  - Somnolence [Unknown]

NARRATIVE: CASE EVENT DATE: 20190111
